FAERS Safety Report 5839301-9 (Version None)
Quarter: 2008Q3

REPORT INFORMATION
  Report Type: 
  Country: None (occurrence: None)
  Receive Date: 20080808
  Receipt Date: 20080728
  Transmission Date: 20090109
  Serious: Yes (Other)
  Sender: FDA-Public Use
  Company Number: US-PFIZER INC-2008063995

PATIENT
  Sex: Female
  Weight: 63.636 kg

DRUGS (9)
  1. CHANTIX [Suspect]
     Indication: SMOKING CESSATION THERAPY
     Dates: start: 20080601, end: 20080601
  2. ANTIHYPERTENSIVES [Concomitant]
  3. BETA BLOCKING AGENTS [Concomitant]
  4. PROCARDIA [Concomitant]
  5. KLONOPIN [Concomitant]
  6. METHADONE HCL [Concomitant]
  7. LIPITOR [Concomitant]
  8. CYMBALTA [Concomitant]
  9. VITAMIN TAB [Concomitant]

REACTIONS (2)
  - DEPRESSION [None]
  - HOMICIDAL IDEATION [None]
